FAERS Safety Report 9132809 (Version 2)
Quarter: 2013Q1

REPORT INFORMATION
  Report Type: Report from Study
  Country: US (occurrence: US)
  Receive Date: 20130301
  Receipt Date: 20130326
  Transmission Date: 20140127
  Serious: Yes (Hospitalization, Other)
  Sender: FDA-Public Use
  Company Number: US-PFIZER INC-2011011776

PATIENT
  Age: 75 Year
  Sex: Female
  Weight: 65.76 kg

DRUGS (4)
  1. LIPITOR [Suspect]
     Indication: BLOOD CHOLESTEROL INCREASED
     Dosage: 10 MG, DAILY, AT NIGHT
     Dates: start: 2008
  2. ARTHROTEC [Suspect]
     Indication: ARTHRITIS
     Dosage: 200MCG/ 75 MG, 2X/DAY (MORNING AND EVENING)
  3. ZOLOFT [Suspect]
     Indication: DEPRESSION
     Dosage: 100 MG, DAILY
  4. GABAPENTIN [Concomitant]
     Dosage: 300 MG, 3X/DAY

REACTIONS (2)
  - Back disorder [Unknown]
  - Guillain-Barre syndrome [Unknown]
